FAERS Safety Report 11274151 (Version 1)
Quarter: 2015Q3

REPORT INFORMATION
  Report Type: Report from Study
  Country: US (occurrence: US)
  Receive Date: 20150715
  Receipt Date: 20150715
  Transmission Date: 20151125
  Serious: Yes (Other)
  Sender: FDA-Public Use
  Company Number: US-BAYER-2015-277240

PATIENT
  Age: 62 Year
  Sex: Male
  Weight: 92.97 kg

DRUGS (3)
  1. XOFIGO [Suspect]
     Active Substance: RADIUM RA-223 DICHLORIDE
     Indication: PROSTATE CANCER METASTATIC
     Dosage: 1 DF, Q1MON
     Route: 042
     Dates: start: 20150226
  2. XOFIGO [Suspect]
     Active Substance: RADIUM RA-223 DICHLORIDE
     Indication: PROSTATE CANCER METASTATIC
     Dosage: 1 DF, Q1MON
     Route: 042
     Dates: start: 20150430
  3. XOFIGO [Suspect]
     Active Substance: RADIUM RA-223 DICHLORIDE
     Indication: PROSTATE CANCER METASTATIC
     Dosage: 1 DF, Q1MON
     Route: 042
     Dates: start: 20150402

REACTIONS (7)
  - Platelet count decreased [None]
  - Fatigue [None]
  - Haematocrit decreased [None]
  - Pain [None]
  - Haemoglobin decreased [None]
  - White blood cell count decreased [None]
  - Gait disturbance [None]

NARRATIVE: CASE EVENT DATE: 20150611
